FAERS Safety Report 5584549-4 (Version None)
Quarter: 2008Q1

REPORT INFORMATION
  Report Type: 
  Country: None (occurrence: None)
  Receive Date: 20080108
  Receipt Date: 20080102
  Transmission Date: 20080703
  Serious: Yes (Hospitalization, Other)
  Sender: FDA-Public Use
  Company Number: PHHO2007US12340

PATIENT
  Age: 42 Year
  Sex: Male
  Weight: 111.4 kg

DRUGS (1)
  1. AMN107 [Suspect]
     Indication: CHRONIC MYELOID LEUKAEMIA
     Dosage: 200 MG, QD
     Route: 048
     Dates: start: 20060209, end: 20070711

REACTIONS (3)
  - DYSPHAGIA [None]
  - HYPOAESTHESIA [None]
  - ISCHAEMIC STROKE [None]
